FAERS Safety Report 5388558-X (Version None)
Quarter: 2007Q3

REPORT INFORMATION
  Report Type: 
  Country: None (occurrence: None)
  Receive Date: 20070716
  Receipt Date: 20070704
  Transmission Date: 20080115
  Serious: Yes (Death)
  Sender: FDA-Public Use
  Company Number: JP-PFIZER INC-2007054806

PATIENT
  Age: 75 Year
  Sex: Male

DRUGS (4)
  1. DALACIN S [Suspect]
     Indication: PROPHYLAXIS
     Route: 042
  2. CEFEPIME [Suspect]
     Indication: PROPHYLAXIS
     Route: 042
  3. DORIPENEM [Suspect]
     Indication: PROPHYLAXIS
     Route: 042
  4. CHEMOTHERAPY NOS [Concomitant]

REACTIONS (1)
  - INTERSTITIAL LUNG DISEASE [None]
